FAERS Safety Report 5098754-7 (Version None)
Quarter: 2006Q3

REPORT INFORMATION
  Report Type: 
  Country: None (occurrence: None)
  Receive Date: 20060907
  Receipt Date: 20060817
  Transmission Date: 20061208
  Serious: No
  Sender: FDA-Public Use
  Company Number: JP-JPN-A200603185

PATIENT
  Age: 80 Year
  Sex: Female

DRUGS (3)
  1. PAXIL [Suspect]
     Indication: DEPRESSION
     Route: 048
  2. UNKNOWN DRUG [Concomitant]
  3. UNKNOWN DRUG [Concomitant]

REACTIONS (1)
  - FACE OEDEMA [None]
